FAERS Safety Report 12014262 (Version 3)
Quarter: 2016Q1

REPORT INFORMATION
  Report Type: Spontaneous
  Country: US (occurrence: US)
  Receive Date: 20160205
  Receipt Date: 20160309
  Transmission Date: 20160526
  Serious: Yes (Other)
  Sender: FDA-Public Use
  Company Number: US-AUROBINDO-AUR-APL-2016-01128

PATIENT
  Age: 42 Year
  Sex: Female

DRUGS (1)
  1. AMOXICILLIN+CLAVULANIC ACID 375MG [Suspect]
     Active Substance: AMOXICILLIN\CLAVULANIC ACID
     Indication: PHARYNGITIS
     Route: 048

REACTIONS (6)
  - Pancreatitis [Recovering/Resolving]
  - Abdominal pain [Recovering/Resolving]
  - Abdominal tenderness [Recovering/Resolving]
  - Transaminases increased [Recovering/Resolving]
  - Leukocytosis [Recovering/Resolving]
  - Lipase increased [Recovering/Resolving]
